FAERS Safety Report 9889678 (Version 1)
Quarter: 2014Q1

REPORT INFORMATION
  Report Type: Spontaneous
  Country: US (occurrence: US)
  Receive Date: 20140211
  Receipt Date: 20140211
  Transmission Date: 20141002
  Serious: Yes (Other)
  Sender: FDA-Public Use
  Company Number: US-PFIZER INC-2014036733

PATIENT
  Age: 53 Year
  Sex: Male
  Weight: 83.9 kg

DRUGS (2)
  1. PROTONIX [Suspect]
     Dosage: UNK
  2. VIAGRA [Suspect]
     Dosage: UNK

REACTIONS (1)
  - Musculoskeletal discomfort [Unknown]
